APPROVED DRUG PRODUCT: PERIOSTAT
Active Ingredient: DOXYCYCLINE HYCLATE
Strength: EQ 20MG BASE **Federal Register determination that product was not discontinued or withdrawn for safety or effectiveness reasons**
Dosage Form/Route: CAPSULE;ORAL
Application: N050744 | Product #001
Applicant: COLLAGENEX INC
Approved: Sep 30, 1998 | RLD: Yes | RS: No | Type: DISCN